FAERS Safety Report 8232583-8 (Version None)
Quarter: 2012Q1

REPORT INFORMATION
  Report Type: 
  Country: None (occurrence: None)
  Receive Date: 20120323
  Receipt Date: 20120201
  Transmission Date: 20120608
  Serious: Yes (Congenital Anomaly)
  Sender: FDA-Public Use
  Company Number: CA-FRI-1000029281

PATIENT
  Weight: 3.06 kg

DRUGS (23)
  1. METHYLPREDNISOLONE [Concomitant]
     Route: 064
  2. MULTI-VITAMIN [Concomitant]
     Route: 064
  3. METOCLOPRAMIDE [Suspect]
     Dosage: 45 MG IN D5% 250 ML AT A RATE OF 1.8 MG/H TO 3.2 MG/H.
     Route: 064
  4. ACETAMINOPHEN [Suspect]
     Route: 064
  5. SODIUM CHLORIDE [Concomitant]
     Route: 064
  6. CODEINE SULFATE [Concomitant]
     Route: 064
  7. ONDANSETRON [Suspect]
     Route: 064
  8. RANITIDINE [Concomitant]
     Route: 064
  9. CLOTRIMAZOLE [Concomitant]
     Route: 064
  10. DEXTROSE 5% AND SODIUM CHLORIDE 0.45% IN PLASTIC CONTAINER [Concomitant]
     Route: 064
  11. THIAMINE HCL [Concomitant]
     Dosage: 100 MG EVERY 6 HOURS IN D5% NACL 0.9%
     Route: 064
  12. LACTULOSE [Suspect]
     Route: 064
  13. HYDROMORPHONE HCL [Concomitant]
     Route: 064
  14. DOMPERIDONE [Concomitant]
     Route: 064
  15. CITALOPRAM HYDROBROMIDE [Suspect]
     Route: 064
  16. DIPHENHYDRAMIN [Concomitant]
     Dosage: 50 MG EVERY 6 HOURS IN D5% NACL 0.9%
     Route: 064
  17. PREDNISONE TAB [Concomitant]
     Route: 064
  18. PANTOPRAZOLE [Suspect]
     Route: 064
  19. OMEPRAZOLE [Concomitant]
     Route: 064
  20. GLYCERIN [Concomitant]
     Route: 064
  21. ZINGIBER OFFICINALE RHIZOME [Concomitant]
     Route: 064
  22. HYDROXYZINE [Concomitant]
     Route: 064
  23. INDOMETHACIN [Concomitant]
     Route: 064

REACTIONS (2)
  - KIDNEY MALFORMATION [None]
  - MATERNAL EXPOSURE DURING PREGNANCY [None]
